FAERS Safety Report 10101945 (Version 1)
Quarter: 2014Q2

REPORT INFORMATION
  Report Type: Spontaneous
  Country: US (occurrence: None)
  Receive Date: 20140423
  Receipt Date: 20140423
  Transmission Date: 20141212
  Serious: Yes (Disabling)
  Sender: FDA-Public Use
  Company Number: None

PATIENT
  Age: 49 Year
  Sex: Female
  Weight: 73.94 kg

DRUGS (8)
  1. TOPIRAMATE [Suspect]
     Indication: MIGRAINE
  2. PLAVIX [Concomitant]
  3. METHADONE [Concomitant]
  4. METOPROID [Concomitant]
  5. EFFEXOR-XR [Concomitant]
  6. FIORIOEX [Concomitant]
  7. TYLENOL [Concomitant]
  8. PECID AD [Concomitant]

REACTIONS (10)
  - Paraesthesia [None]
  - Discomfort [None]
  - Limb discomfort [None]
  - Dizziness [None]
  - Clumsiness [None]
  - Stomatitis [None]
  - Cheilitis [None]
  - Somnolence [None]
  - Respiratory disorder [None]
  - Feeling abnormal [None]
